FAERS Safety Report 16873876 (Version 1)
Quarter: 2019Q4

REPORT INFORMATION
  Report Type: Spontaneous
  Country: JP (occurrence: JP)
  Receive Date: 20191001
  Receipt Date: 20191001
  Transmission Date: 20200122
  Serious: Yes (Death)
  Sender: FDA-Public Use
  Company Number: JP-ELI_LILLY_AND_COMPANY-JP201906000856

PATIENT
  Age: 76 Year
  Sex: Male

DRUGS (1)
  1. TRULICITY [Suspect]
     Active Substance: DULAGLUTIDE
     Indication: STEROID DIABETES
     Dosage: UNK
     Route: 058
     Dates: start: 20170628, end: 20170719

REACTIONS (2)
  - Interstitial lung disease [Fatal]
  - Weight decreased [Unknown]
